FAERS Safety Report 17788306 (Version 6)
Quarter: 2020Q2

REPORT INFORMATION
  Report Type: Report from Study
  Country: None (occurrence: BE)
  Receive Date: 20200515
  Receipt Date: 20200616
  Transmission Date: 20200714
  Serious: Yes (Hospitalization)
  Sender: FDA-Public Use
  Company Number: BE-ABBVIE-20K-013-3401879-00

PATIENT
  Sex: Female

DRUGS (6)
  1. DUODOPA [Suspect]
     Active Substance: CARBIDOPA\LEVODOPA
     Dosage: MD=0ML, CD=3ML/HR DURING 16HRS, ED=1,8ML
     Route: 050
     Dates: start: 20200603, end: 20200605
  2. DUODOPA [Suspect]
     Active Substance: CARBIDOPA\LEVODOPA
     Dosage: MD=0ML, CD=2.8ML/HR DURING 16HRS, ED=1ML
     Route: 050
     Dates: start: 20200519, end: 20200528
  3. DUODOPA [Suspect]
     Active Substance: CARBIDOPA\LEVODOPA
     Dosage: MD=3ML, CD=3ML/HR DURING 16HRS, ED=1,5ML; ND=3ML/HR DURING 8HRS
     Route: 050
     Dates: start: 20200528, end: 20200603
  4. DUODOPA [Suspect]
     Active Substance: CARBIDOPA\LEVODOPA
     Indication: PARKINSON^S DISEASE
     Dosage: MD=5ML, CD=2.4ML/HR DURING 16HRS, ED=1ML
     Route: 050
     Dates: start: 20200506, end: 20200511
  5. DUODOPA [Suspect]
     Active Substance: CARBIDOPA\LEVODOPA
     Dosage: MD=0ML, CD=3.2ML/HR DURING 16HRS, ED=2ML
     Route: 050
     Dates: start: 20200605
  6. DUODOPA [Suspect]
     Active Substance: CARBIDOPA\LEVODOPA
     Dosage: MD=3ML, CD=2.4ML/HR DURING 16HRS, ED=1ML, ND=2.4ML/HR DURING?8HRS
     Route: 050
     Dates: start: 20200511, end: 20200519

REACTIONS (17)
  - Musculoskeletal stiffness [Unknown]
  - Fatigue [Unknown]
  - Pain [Recovered/Resolved]
  - Depression [Unknown]
  - Muscle rigidity [Recovered/Resolved]
  - Dysstasia [Unknown]
  - Gait disturbance [Unknown]
  - Headache [Unknown]
  - Stoma site pain [Recovered/Resolved]
  - Therapeutic product effect incomplete [Not Recovered/Not Resolved]
  - Mobility decreased [Recovering/Resolving]
  - Back pain [Unknown]
  - Abdominal pain [Unknown]
  - Burning sensation [Recovered/Resolved]
  - Tremor [Not Recovered/Not Resolved]
  - Hypertension [Unknown]
  - Freezing phenomenon [Unknown]

NARRATIVE: CASE EVENT DATE: 202005
